FAERS Safety Report 6959868-7 (Version None)
Quarter: 2010Q3

REPORT INFORMATION
  Report Type: 
  Country: None (occurrence: None)
  Receive Date: 20100901
  Receipt Date: 20100825
  Transmission Date: 20110219
  Serious: No
  Sender: FDA-Public Use
  Company Number: US-BIOGENIDEC-2010BI029875

PATIENT
  Age: 35 Year
  Sex: Female

DRUGS (1)
  1. TYSABRI [Suspect]
     Indication: MULTIPLE SCLEROSIS
     Route: 042
     Dates: start: 20100608

REACTIONS (6)
  - EYE PAIN [None]
  - FALL [None]
  - FATIGUE [None]
  - INCREASED TENDENCY TO BRUISE [None]
  - LOSS OF CONTROL OF LEGS [None]
  - WEIGHT DECREASED [None]
